FAERS Safety Report 5003610-6 (Version None)
Quarter: 2006Q2

REPORT INFORMATION
  Report Type: 
  Country: None (occurrence: None)
  Receive Date: 20060516
  Receipt Date: 20050218
  Transmission Date: 20061013
  Serious: Yes (Hospitalization, Disabling)
  Sender: FDA-Public Use
  Company Number: US-MERCK-0502USA02974

PATIENT
  Age: 53 Year
  Sex: Male
  Weight: 95 kg

DRUGS (2)
  1. VIOXX [Suspect]
     Indication: OSTEOARTHRITIS
     Route: 048
     Dates: start: 20001201, end: 20011001
  2. VIOXX [Suspect]
     Route: 048
     Dates: start: 20011001, end: 20040901

REACTIONS (26)
  - ACUTE MYOCARDIAL INFARCTION [None]
  - ANXIETY [None]
  - ARRHYTHMIA [None]
  - ARTHRITIS BACTERIAL [None]
  - BACTERAEMIA [None]
  - BLOOD HOMOCYSTEINE INCREASED [None]
  - CERVICOBRACHIAL SYNDROME [None]
  - COLITIS ISCHAEMIC [None]
  - CORONARY ARTERY THROMBOSIS [None]
  - DEEP VEIN THROMBOSIS [None]
  - DEPRESSION [None]
  - DIZZINESS [None]
  - ESSENTIAL HYPERTENSION [None]
  - FISTULA [None]
  - HIP ARTHROPLASTY [None]
  - HYPERCHOLESTEROLAEMIA [None]
  - HYPERLIPIDAEMIA [None]
  - INTERNATIONAL NORMALISED RATIO ABNORMAL [None]
  - JOINT INJURY [None]
  - POST-TRAUMATIC STRESS DISORDER [None]
  - PYREXIA [None]
  - RADICULOPATHY [None]
  - STAPHYLOCOCCAL BACTERAEMIA [None]
  - STAPHYLOCOCCAL INFECTION [None]
  - SYNCOPE [None]
  - VENTRICULAR TACHYCARDIA [None]
